FAERS Safety Report 11965523 (Version 1)
Quarter: 2016Q1

REPORT INFORMATION
  Report Type: Spontaneous
  Country: US (occurrence: None)
  Receive Date: 20160125
  Receipt Date: 20160125
  Transmission Date: 20160526
  Serious: Yes (Hospitalization, Disabling, Other)
  Sender: FDA-Public Use
  Company Number: None

PATIENT
  Age: 38 Year
  Sex: Male
  Weight: 85.28 kg

DRUGS (1)
  1. CIPROFLOXACIN. [Suspect]
     Active Substance: CIPROFLOXACIN
     Indication: PROSTATITIS
     Dosage: ONE PILL
     Route: 048
     Dates: start: 20151028, end: 20151110

REACTIONS (19)
  - Palpitations [None]
  - Dizziness [None]
  - Neuropathy peripheral [None]
  - Weight decreased [None]
  - Fatigue [None]
  - Muscular weakness [None]
  - Paraesthesia [None]
  - Anxiety [None]
  - Constipation [None]
  - Nerve injury [None]
  - Confusional state [None]
  - Insomnia [None]
  - Decreased appetite [None]
  - Irritability [None]
  - Headache [None]
  - Feeling abnormal [None]
  - Loss of libido [None]
  - Night sweats [None]
  - Decreased interest [None]

NARRATIVE: CASE EVENT DATE: 20151110
